FAERS Safety Report 6103821-2 (Version None)
Quarter: 2009Q1

REPORT INFORMATION
  Report Type: 
  Country: None (occurrence: None)
  Receive Date: 20090305
  Receipt Date: 20090227
  Transmission Date: 20090719
  Serious: Yes (Life-Threatening)
  Sender: FDA-Public Use
  Company Number: JP-JNJFOC-20090301019

PATIENT
  Sex: Female

DRUGS (3)
  1. TAPENTADOL HYDROCHLORIDE [Suspect]
     Route: 048
  2. TAPENTADOL HYDROCHLORIDE [Suspect]
     Indication: CANCER PAIN
     Route: 048
  3. OXYCONTIN [Concomitant]
     Indication: PAIN

REACTIONS (2)
  - DELIRIUM [None]
  - HYPERCALCAEMIA [None]
